FAERS Safety Report 10011785 (Version 1)
Quarter: 2014Q1

REPORT INFORMATION
  Report Type: Other
  Country: US (occurrence: US)
  Receive Date: 20140314
  Receipt Date: 20140314
  Transmission Date: 20141002
  Serious: Yes (Hospitalization)
  Sender: FDA-Public Use
  Company Number: US-BRISTOL-MYERS SQUIBB COMPANY-20422572

PATIENT
  Age: 53 Year
  Sex: Male

DRUGS (7)
  1. WARFARIN SODIUM [Suspect]
     Indication: COAGULOPATHY
     Dosage: 1MG FOR 4 DAYS;2MG FOR 3 DAYS
  2. AMOXICILLIN\ CLAVULANATE POTASSIUM TABLETS (CLAVULANATE POTASSIUM/AMOXICILLIN TRIHYDRATE) [Interacting]
     Indication: TOOTH ABSCESS
     Dosage: 500/125 MG
  3. ALBUTEROL INHALER [Concomitant]
  4. ALBUTEROL INHALER [Concomitant]
  5. TRAZODONE HCL [Concomitant]
     Route: 048
  6. CHLORDIAZEPOXIDE [Concomitant]
     Dosage: 1-3 TIMES/DAY
     Route: 048
  7. VICODIN ES [Concomitant]
     Indication: PAIN
     Dosage: 1DF=1.5/750 TAB
     Route: 048

REACTIONS (5)
  - Post procedural haemorrhage [Recovered/Resolved]
  - Haematuria [Unknown]
  - Contusion [Unknown]
  - International normalised ratio increased [Unknown]
  - Drug interaction [Unknown]
